FAERS Safety Report 9033999 (Version 1)
Quarter: 2013Q1

REPORT INFORMATION
  Report Type: Spontaneous
  Country: US (occurrence: US)
  Receive Date: 20130128
  Receipt Date: 20130128
  Transmission Date: 20140127
  Serious: Yes (Hospitalization, Other)
  Sender: FDA-Public Use
  Company Number: US-AMGEN-USASP2012064279

PATIENT
  Sex: Female
  Weight: 77.1 kg

DRUGS (10)
  1. ENBREL [Suspect]
     Indication: RHEUMATOID ARTHRITIS
     Dosage: 50 MG, QWK
     Route: 058
  2. SERTRALINE [Concomitant]
     Dosage: 25 MG, UNK
  3. METHOTREXATE [Concomitant]
     Dosage: 2.5 MG, UNK
  4. PREDNISONE [Concomitant]
     Dosage: 1 MG, UNK
  5. FOLIC ACID [Concomitant]
     Dosage: 1 MG, UNK
  6. METOPROLOL [Concomitant]
     Dosage: 25 MG, UNK
  7. NEXIUM                             /01479302/ [Concomitant]
     Dosage: 40 MG, UNK
  8. ESTRADIOL [Concomitant]
     Dosage: 0.05 MG, UNK
  9. OXYCODONE [Concomitant]
     Dosage: 10 MG, UNK
  10. PROAIR HFA [Concomitant]
     Dosage: UNK

REACTIONS (2)
  - Haemorrhagic stroke [Unknown]
  - Urinary tract infection [Unknown]
